FAERS Safety Report 14210708 (Version 1)
Quarter: 2017Q4

REPORT INFORMATION
  Report Type: Spontaneous
  Country: JP (occurrence: JP)
  Receive Date: 20171121
  Receipt Date: 20171121
  Transmission Date: 20180321
  Serious: Yes (Other)
  Sender: FDA-Public Use
  Company Number: JP-JNJFOC-20171121045

PATIENT

DRUGS (1)
  1. ITRIZOLE [Suspect]
     Active Substance: ITRACONAZOLE
     Indication: ANTIFUNGAL PROPHYLAXIS
     Route: 048

REACTIONS (4)
  - Off label use [Unknown]
  - Oesophageal candidiasis [Unknown]
  - Rash [Unknown]
  - Product use in unapproved indication [Unknown]
